FAERS Safety Report 9352554 (Version 1)
Quarter: 2013Q2

REPORT INFORMATION
  Report Type: Spontaneous
  Country: US (occurrence: US)
  Receive Date: 20130618
  Receipt Date: 20130618
  Transmission Date: 20140414
  Serious: No
  Sender: FDA-Public Use
  Company Number: US-B.I. PHARMACEUTICALS,INC./RIDGEFIELD-2013-BI-16619BP

PATIENT
  Age: 73 Year
  Sex: Male

DRUGS (10)
  1. AGGRENOX [Suspect]
     Dosage: STRENGTH: 25 MG / 200 MG;
     Route: 048
     Dates: start: 20130607, end: 20130607
  2. XARELTO [Concomitant]
     Route: 048
  3. FLEXERIL [Concomitant]
     Route: 048
  4. MELOXICAM [Concomitant]
     Route: 048
  5. AMOXICILLIN [Concomitant]
     Route: 048
  6. ALBUTEROL [Concomitant]
     Route: 055
  7. ASPIRIN [Concomitant]
     Dosage: 81 MG
     Route: 048
  8. FLUTICASONE [Concomitant]
     Route: 055
  9. LISINOPRIL [Concomitant]
     Indication: HYPERTENSION
     Route: 048
  10. LOPRESSOR [Concomitant]
     Route: 048

REACTIONS (1)
  - Drug dispensing error [Recovered/Resolved]
